FAERS Safety Report 14004892 (Version 6)
Quarter: 2020Q1

REPORT INFORMATION
  Report Type: Spontaneous
  Country: US (occurrence: US)
  Receive Date: 20170922
  Receipt Date: 20200221
  Transmission Date: 20200409
  Serious: No
  Sender: FDA-Public Use
  Company Number: US-PFIZER INC-2017405681

PATIENT
  Age: 73 Year
  Sex: Female
  Weight: 85.27 kg

DRUGS (3)
  1. IBRANCE [Suspect]
     Active Substance: PALBOCICLIB
     Indication: BREAST CANCER METASTATIC
     Dosage: 125 MG, DAILY (DAYS 1-21 Q28 DAYS)
     Route: 048
     Dates: start: 20170904
  2. IBRANCE [Suspect]
     Active Substance: PALBOCICLIB
     Dosage: 125 MG, DAILY WITH NO BREAK
     Route: 048
  3. IBRANCE [Suspect]
     Active Substance: PALBOCICLIB
     Dosage: 100 MG, UNK

REACTIONS (5)
  - Tooth disorder [Unknown]
  - Gingival pain [Unknown]
  - Oral pain [Unknown]
  - Pain in jaw [Unknown]
  - Off label use [Unknown]

NARRATIVE: CASE EVENT DATE: 20170917
